FAERS Safety Report 7513898-5 (Version None)
Quarter: 2011Q2

REPORT INFORMATION
  Report Type: 
  Country: None (occurrence: None)
  Receive Date: 20110531
  Receipt Date: 20110518
  Transmission Date: 20111010
  Serious: Yes (Other)
  Sender: FDA-Public Use
  Company Number: PHHY2011US42502

PATIENT
  Age: 51 Year
  Sex: Male

DRUGS (3)
  1. CLOZARIL [Suspect]
     Dosage: 200 MG, UNK
  2. CIPRIL [Concomitant]
  3. RISPERDAL [Concomitant]

REACTIONS (4)
  - MALAISE [None]
  - MEDICATION ERROR [None]
  - OEDEMA PERIPHERAL [None]
  - ERYTHEMA [None]
